FAERS Safety Report 18582872 (Version 1)
Quarter: 2020Q4

REPORT INFORMATION
  Report Type: Other
  Country: US (occurrence: US)
  Receive Date: 20201205
  Receipt Date: 20201205
  Transmission Date: 20210114
  Serious: Yes (Life-Threatening, Hospitalization)
  Sender: FDA-Public Use
  Company Number: US-DEXPHARM-20201081

PATIENT
  Age: 32 Year
  Sex: Female

DRUGS (11)
  1. SUCCINYLCHOLINE [Suspect]
     Active Substance: SUCCINYLCHOLINE
  2. ONDANSETRON [Suspect]
     Active Substance: ONDANSETRON
  3. PROPOFOL. [Suspect]
     Active Substance: PROPOFOL
  4. HYDROCODONE 5 MG WITH ACETAMINOPHEN 325 MG [Concomitant]
  5. MORPHINE [Concomitant]
     Active Substance: MORPHINE
  6. ALBUTEROL. [Concomitant]
     Active Substance: ALBUTEROL
  7. LIDOCAINE 1% [Suspect]
     Active Substance: LIDOCAINE
  8. KETOROLAC [Concomitant]
     Active Substance: KETOROLAC TROMETHAMINE
  9. DEXAMETHASONE. [Suspect]
     Active Substance: DEXAMETHASONE
  10. SEVOFLURANE. [Suspect]
     Active Substance: SEVOFLURANE
  11. ACETAMINOPHEN. [Concomitant]
     Active Substance: ACETAMINOPHEN

REACTIONS (2)
  - Drug interaction [Unknown]
  - Rhabdomyolysis [Recovered/Resolved]
